FAERS Safety Report 9602860 (Version 7)
Quarter: 2015Q1

REPORT INFORMATION
  Report Type: Spontaneous
  Country: US (occurrence: US)
  Receive Date: 20131007
  Receipt Date: 20150324
  Transmission Date: 20150721
  Serious: Yes (Hospitalization, Other)
  Sender: FDA-Public Use
  Company Number: US-009507513-1310USA000317

PATIENT
  Sex: Female
  Weight: 70.75 kg

DRUGS (7)
  1. FOSAMAX [Suspect]
     Active Substance: ALENDRONATE SODIUM
     Indication: OSTEOPOROSIS
     Dosage: 70 MG, QW
     Route: 048
     Dates: start: 200611, end: 201104
  2. CALCIUM (UNSPECIFIED) [Concomitant]
     Active Substance: CALCIUM
     Dosage: 600 MG, BID
     Dates: start: 2000
  3. VITAMINS (UNSPECIFIED) [Concomitant]
     Active Substance: VITAMINS
     Dosage: 1 DF, QD
     Dates: start: 2000
  4. OMEPRAZOLE. [Concomitant]
     Active Substance: OMEPRAZOLE
     Indication: GASTROOESOPHAGEAL REFLUX DISEASE
     Dosage: 20 MG, QD
     Dates: start: 2003
  5. CHOLECALCIFEROL [Concomitant]
     Active Substance: CHOLECALCIFEROL
     Dosage: 500 MG, QD
     Dates: start: 2000
  6. ALENDRONATE SODIUM. [Suspect]
     Active Substance: ALENDRONATE SODIUM
     Indication: OSTEOPOROSIS
     Dosage: 70 MG, UNK
     Route: 048
     Dates: start: 200802, end: 201102
  7. GLUCOSAMINE [Concomitant]
     Active Substance: GLUCOSAMINE
     Dosage: 1500 MG, BID
     Dates: start: 2000

REACTIONS (27)
  - Back pain [Unknown]
  - Drug hypersensitivity [Unknown]
  - Benign bone neoplasm [Unknown]
  - Hip arthroplasty [Unknown]
  - Depression [Unknown]
  - Visual impairment [Unknown]
  - Haematoma [Unknown]
  - Bladder repair [Unknown]
  - Varicose vein [Unknown]
  - Pain in jaw [Unknown]
  - Femur fracture [Unknown]
  - Pubis fracture [Unknown]
  - Osteoarthritis [Unknown]
  - Osteoarthritis [Unknown]
  - Neck pain [Unknown]
  - Femur fracture [Unknown]
  - Restless legs syndrome [Unknown]
  - Intramedullary rod insertion [Unknown]
  - Vitamin D deficiency [Unknown]
  - Tonsillectomy [Unknown]
  - Cystocele [Unknown]
  - Dizziness [Recovering/Resolving]
  - Abdominal discomfort [Unknown]
  - Balance disorder [Unknown]
  - Coronary artery disease [Unknown]
  - Adenoidectomy [Unknown]
  - Insomnia [Unknown]

NARRATIVE: CASE EVENT DATE: 2010
